FAERS Safety Report 10257221 (Version 2)
Quarter: 2014Q2

REPORT INFORMATION
  Report Type: Spontaneous
  Country: US (occurrence: US)
  Receive Date: 20140625
  Receipt Date: 20140625
  Transmission Date: 20141212
  Serious: Yes (Other)
  Sender: FDA-Public Use
  Company Number: US-ELI_LILLY_AND_COMPANY-US201405004921

PATIENT
  Age: 72 Year
  Sex: Male
  Weight: 171.97 kg

DRUGS (4)
  1. HUMALOG LISPRO [Suspect]
     Indication: TYPE 2 DIABETES MELLITUS
     Dosage: 80 U, PRN 3-4 TIMES A DAY WITH MEALS
     Route: 065
     Dates: start: 200508
  2. HUMALOG LISPRO [Suspect]
     Dosage: 80 U, PRN 3-4 TIMES A DAY WITH MEALS
     Route: 065
     Dates: start: 20140512
  3. HUMALOG LISPRO [Suspect]
     Dosage: 100 U, OTHER
     Route: 065
  4. LANTUS [Concomitant]
     Indication: PRODUCT USED FOR UNKNOWN INDICATION
     Dosage: UNK, UNKNOWN
     Route: 065

REACTIONS (3)
  - Diabetic foot [Unknown]
  - Blood glucose increased [Unknown]
  - Drug ineffective [Unknown]
